FAERS Safety Report 8925003 (Version 1)
Quarter: 2012Q4

REPORT INFORMATION
  Report Type: 
  Country: FR (occurrence: FR)
  Receive Date: 20121126
  Receipt Date: 20121126
  Transmission Date: 20130627
  Serious: Yes (Other)
  Sender: FDA-Public Use
  Company Number: FR-ROCHE-381062

PATIENT
  Age: 82 Year
  Sex: Female

DRUGS (3)
  1. ROCEPHINE [Suspect]
     Indication: PYREXIA
     Route: 065
  2. KARDEGIC [Concomitant]
     Indication: PRODUCT USED FOR UNKNOWN INDICATION
     Route: 065
  3. TANAKAN (UNK INGREDIENTS) [Concomitant]
     Indication: PRODUCT USED FOR UNKNOWN INDICATION
     Route: 065

REACTIONS (3)
  - Hepatitis [Not Recovered/Not Resolved]
  - Transaminases increased [Unknown]
  - Blood bilirubin increased [Unknown]
